FAERS Safety Report 4840088-7 (Version None)
Quarter: 2005Q4

REPORT INFORMATION
  Report Type: 
  Country: None (occurrence: None)
  Receive Date: 20051125
  Receipt Date: 20051116
  Transmission Date: 20060501
  Serious: Yes (Death, Hospitalization)
  Sender: FDA-Public Use
  Company Number: 163-20785-05100154

PATIENT
  Age: 80 Year
  Sex: Female

DRUGS (7)
  1. THALOMID [Suspect]
     Indication: MULTIPLE MYELOMA
     Dosage: 150 MG, AT BEDTIME, ORAL
     Route: 048
     Dates: start: 20040330, end: 20041019
  2. COUMADIN [Concomitant]
  3. LASIX [Concomitant]
  4. ZESTRIL [Concomitant]
  5. LANOXIN [Concomitant]
  6. DARVOCET-N (PROPACET) [Concomitant]
  7. ALLOPURINOL [Concomitant]

REACTIONS (20)
  - AORTIC VALVE INCOMPETENCE [None]
  - AZOTAEMIA [None]
  - BLOOD CREATININE INCREASED [None]
  - BLOOD UREA INCREASED [None]
  - CARDIOVASCULAR DISORDER [None]
  - CELLULITIS [None]
  - DILATATION ATRIAL [None]
  - DILATATION VENTRICULAR [None]
  - DISEASE PROGRESSION [None]
  - HAEMORRHAGE [None]
  - INTERNATIONAL NORMALISED RATIO DECREASED [None]
  - MITRAL VALVE INCOMPETENCE [None]
  - MITRAL VALVE STENOSIS [None]
  - PULMONARY ARTERIAL PRESSURE INCREASED [None]
  - PURPURA [None]
  - SKIN ULCER [None]
  - TREATMENT NONCOMPLIANCE [None]
  - TRICUSPID VALVE INCOMPETENCE [None]
  - VENTRICULAR DYSFUNCTION [None]
  - VENTRICULAR HYPERTROPHY [None]
